FAERS Safety Report 13870087 (Version 3)
Quarter: 2020Q3

REPORT INFORMATION
  Report Type: Spontaneous
  Country: US (occurrence: US)
  Receive Date: 20170815
  Receipt Date: 20200908
  Transmission Date: 20201102
  Serious: Yes (Hospitalization, Other)
  Sender: FDA-Public Use
  Company Number: US-EMD SERONO-7024515

PATIENT
  Age: 56 Year
  Sex: Female

DRUGS (2)
  1. PROTONIX                           /00661201/ [Concomitant]
     Active Substance: OMEPRAZOLE
     Indication: PRODUCT USED FOR UNKNOWN INDICATION
  2. REBIF [Suspect]
     Active Substance: INTERFERON BETA-1A
     Indication: MULTIPLE SCLEROSIS
     Dosage: REBIF PREFILLED SYRINGE
     Route: 058
     Dates: start: 20100716

REACTIONS (18)
  - Myocardial infarction [Unknown]
  - Stress [Unknown]
  - Blood pressure fluctuation [Unknown]
  - Abdominal pain upper [Unknown]
  - Angina pectoris [Not Recovered/Not Resolved]
  - Fatigue [Recovering/Resolving]
  - Cardiomegaly [Not Recovered/Not Resolved]
  - Atelectasis [Not Recovered/Not Resolved]
  - Chronic obstructive pulmonary disease [Unknown]
  - Movement disorder [Not Recovered/Not Resolved]
  - Pulmonary mass [Not Recovered/Not Resolved]
  - Muscle spasms [Unknown]
  - Vomiting [Unknown]
  - Influenza like illness [Unknown]
  - Multiple sclerosis relapse [Recovered/Resolved]
  - Hepatic enzyme increased [Unknown]
  - Dizziness [Recovering/Resolving]
  - Dysarthria [Recovered/Resolved]

NARRATIVE: CASE EVENT DATE: 201007
